FAERS Safety Report 5790832-X (Version None)
Quarter: 2008Q2

REPORT INFORMATION
  Report Type: 
  Country: None (occurrence: None)
  Receive Date: 20080626
  Receipt Date: 20080507
  Transmission Date: 20081010
  Serious: No
  Sender: FDA-Public Use
  Company Number: A0726715A

PATIENT
  Age: 64 Year
  Sex: Female
  Weight: 67 kg

DRUGS (5)
  1. ALLI [Suspect]
  2. PRILOSEC [Concomitant]
  3. ANTIHYPERTENSIVE [Concomitant]
  4. ASPIRIN [Concomitant]
  5. VITAMINS [Concomitant]

REACTIONS (2)
  - ERUCTATION [None]
  - NAUSEA [None]
